FAERS Safety Report 20992017 (Version 1)
Quarter: 2022Q2

REPORT INFORMATION
  Report Type: Spontaneous
  Country: US (occurrence: None)
  Receive Date: 20220621
  Receipt Date: 20220621
  Transmission Date: 20220721
  Serious: Yes (Death)
  Sender: FDA-Public Use
  Company Number: None

PATIENT
  Sex: Female

DRUGS (3)
  1. COLISTIMETHATE SODIUM [Suspect]
     Active Substance: COLISTIMETHATE SODIUM
     Dosage: FREQUENCY : DAILY;?MIX 1 VIAL (150 MG) WITH 5 ML STERILE WATER AND NEBULIZE DAILY FOR ONE MONTH DAIL
     Dates: end: 20170330
  2. ORENCIA INJ [Concomitant]
  3. STERILE WATER FOR INJECTI [Concomitant]

REACTIONS (1)
  - Death [None]
